FAERS Safety Report 16545318 (Version 1)
Quarter: 2019Q3

REPORT INFORMATION
  Report Type: Spontaneous
  Country: US (occurrence: US)
  Receive Date: 20190708
  Receipt Date: 20190708
  Transmission Date: 20191004
  Serious: No
  Sender: FDA-Public Use
  Company Number: None

PATIENT
  Age: 51 Year
  Sex: Female
  Weight: 73.8 kg

DRUGS (8)
  1. VITAMIN D [Concomitant]
     Active Substance: VITAMIN D NOS
  2. DHA [Concomitant]
     Active Substance: DIETARY SUPPLEMENT
  3. VITAMIN C [Concomitant]
     Active Substance: ASCORBIC ACID
  4. MAGNESIUM [Concomitant]
     Active Substance: MAGNESIUM
  5. ZINC. [Concomitant]
     Active Substance: ZINC
  6. VITAMIN B [Concomitant]
     Active Substance: VITAMIN B
  7. EYE ITCH RELIEF [Suspect]
     Active Substance: KETOTIFEN FUMARATE
     Indication: DRY EYE
     Dosage: ?          QUANTITY:.17 OUNCE(S);?
     Route: 047
     Dates: start: 20190531, end: 20190707
  8. EYE ITCH RELIEF [Suspect]
     Active Substance: KETOTIFEN FUMARATE
     Indication: EYE PRURITUS
     Dosage: ?          QUANTITY:.17 OUNCE(S);?
     Route: 047
     Dates: start: 20190531, end: 20190707

REACTIONS (3)
  - Eye irritation [None]
  - Instillation site pain [None]
  - Product substitution issue [None]

NARRATIVE: CASE EVENT DATE: 20190707
